FAERS Safety Report 4322224-4 (Version None)
Quarter: 2004Q1

REPORT INFORMATION
  Report Type: 
  Country: None (occurrence: None)
  Receive Date: 20040319
  Receipt Date: 20040315
  Transmission Date: 20041129
  Serious: Yes (Hospitalization, Disabling)
  Sender: FDA-Public Use
  Company Number: OMPQ-PR-0403L-0194 (0)

PATIENT
  Age: 74 Year
  Sex: Female

DRUGS (2)
  1. OMNIPAQUE 70 [Suspect]
     Indication: DIZZINESS
     Dosage: SINGLE DOSE, I.A., SINGLE DOSE
     Route: 013
  2. OMNIPAQUE 70 [Suspect]
     Indication: HEADACHE
     Dosage: SINGLE DOSE, I.A., SINGLE DOSE
     Route: 013

REACTIONS (5)
  - BLINDNESS [None]
  - BLOOD BRAIN BARRIER DEFECT [None]
  - CONFUSIONAL STATE [None]
  - EXTRAVASATION [None]
  - POST PROCEDURAL COMPLICATION [None]
